FAERS Safety Report 7245173-0 (Version None)
Quarter: 2011Q1

REPORT INFORMATION
  Report Type: 
  Country: None (occurrence: None)
  Receive Date: 20110126
  Receipt Date: 20110120
  Transmission Date: 20110831
  Serious: Yes (Other)
  Sender: FDA-Public Use
  Company Number: FR-SANOFI-AVENTIS-2010SA076428

PATIENT
  Age: 40 Year
  Sex: Male

DRUGS (1)
  1. KETEK [Suspect]
     Indication: SINUSITIS
     Route: 048
     Dates: start: 20100101, end: 20100101

REACTIONS (4)
  - PYREXIA [None]
  - FATIGUE [None]
  - DISCOMFORT [None]
  - HEPATITIS [None]
